FAERS Safety Report 10215814 (Version 2)
Quarter: 2014Q2

REPORT INFORMATION
  Report Type: Spontaneous
  Country: JP (occurrence: JP)
  Receive Date: 20140604
  Receipt Date: 20140630
  Transmission Date: 20141212
  Serious: Yes (Hospitalization)
  Sender: FDA-Public Use
  Company Number: PHHY2014JP067270

PATIENT
  Sex: Male

DRUGS (1)
  1. CO-DIOVAN [Suspect]
     Dosage: 1 DF, DAILY
     Route: 048

REACTIONS (2)
  - Respiratory disorder [Unknown]
  - Concomitant disease aggravated [Unknown]
